FAERS Safety Report 17506815 (Version 5)
Quarter: 2024Q4

REPORT INFORMATION
  Report Type: Spontaneous
  Country: US (occurrence: US)
  Receive Date: 20200305
  Receipt Date: 20241018
  Transmission Date: 20250114
  Serious: No
  Sender: ROCHE
  Company Number: US-ROCHE-2481840

PATIENT
  Age: 85 Year
  Sex: Female

DRUGS (3)
  1. XOLAIR [Suspect]
     Active Substance: OMALIZUMAB
     Indication: Idiopathic urticaria
     Dosage: SOL 150MG INJ/ SDV
     Route: 058
     Dates: start: 20170712
  2. XOLAIR [Suspect]
     Active Substance: OMALIZUMAB
     Dosage: SOL 150MG INJ/ SDV
     Route: 058
     Dates: start: 20181112
  3. XOLAIR [Suspect]
     Active Substance: OMALIZUMAB
     Dosage: SDV
     Route: 058

REACTIONS (2)
  - No adverse event [Unknown]
  - Off label use [Unknown]

NARRATIVE: CASE EVENT DATE: 20210709
